FAERS Safety Report 7522384-8 (Version None)
Quarter: 2011Q2

REPORT INFORMATION
  Report Type: 
  Country: None (occurrence: None)
  Receive Date: 20110603
  Receipt Date: 20110520
  Transmission Date: 20111010
  Serious: Yes (Other)
  Sender: FDA-Public Use
  Company Number: US-ELI_LILLY_AND_COMPANY-US201105006797

PATIENT
  Sex: Male

DRUGS (4)
  1. GEODON [Concomitant]
  2. TENEX [Concomitant]
  3. ZYPREXA ZYDIS [Suspect]
     Indication: BIPOLAR DISORDER
     Dosage: 5 MG, DAILY (1/D)
     Dates: start: 20110510
  4. ZYPREXA ZYDIS [Suspect]
     Dosage: 5 MG, DAILY (1/D)
     Dates: start: 20110510

REACTIONS (5)
  - ROAD TRAFFIC ACCIDENT [None]
  - BACK INJURY [None]
  - AMNESIA [None]
  - CONTUSION [None]
  - LOSS OF CONSCIOUSNESS [None]
